FAERS Safety Report 14413355 (Version 1)
Quarter: 2018Q1

REPORT INFORMATION
  Report Type: Spontaneous
  Country: SE (occurrence: SE)
  Receive Date: 20180119
  Receipt Date: 20180119
  Transmission Date: 20180509
  Serious: Yes (Death, Hospitalization, Other)
  Sender: FDA-Public Use
  Company Number: SE-TEVA-2018-SE-845981

PATIENT
  Age: 82 Year
  Sex: Female

DRUGS (3)
  1. ZOPICLONE [Suspect]
     Active Substance: ZOPICLONE
     Route: 048
  2. FENTANYL. [Suspect]
     Active Substance: FENTANYL
     Dosage: 50 MICROGRAM/HOUR
     Route: 003
  3. MIRTAZAPINE. [Suspect]
     Active Substance: MIRTAZAPINE
     Route: 048

REACTIONS (5)
  - Drug ineffective [Fatal]
  - Drug dependence [Fatal]
  - Suicide attempt [Fatal]
  - Toxicity to various agents [Fatal]
  - Completed suicide [Fatal]
